FAERS Safety Report 10145762 (Version 1)
Quarter: 2014Q2

REPORT INFORMATION
  Report Type: Spontaneous
  Country: TN (occurrence: TN)
  Receive Date: 20140501
  Receipt Date: 20140501
  Transmission Date: 20141212
  Serious: Yes (Other)
  Sender: FDA-Public Use
  Company Number: PHHY2014TN051327

PATIENT
  Age: 29 Year
  Sex: Male

DRUGS (3)
  1. IMATINIB [Suspect]
     Indication: CHRONIC MYELOID LEUKAEMIA
     Dosage: 400 MG, PER DAY
     Dates: start: 20090317
  2. RIFAMPICIN [Interacting]
     Indication: PULMONARY TUBERCULOSIS
     Dosage: 600 MG, PER DAY
     Dates: start: 200901
  3. ISONIAZID [Concomitant]
     Indication: PULMONARY TUBERCULOSIS
     Dosage: 300 MG/  PER DAY
     Dates: start: 200901

REACTIONS (3)
  - Drug level increased [Unknown]
  - Drug interaction [Unknown]
  - Drug resistance [Unknown]
